FAERS Safety Report 8489670-9 (Version None)
Quarter: 2012Q3

REPORT INFORMATION
  Report Type: 
  Country: None (occurrence: None)
  Receive Date: 20120705
  Receipt Date: 20120622
  Transmission Date: 20120928
  Serious: Yes (Hospitalization)
  Sender: FDA-Public Use
  Company Number: US-GLAXOSMITHKLINE-A0867469A

PATIENT
  Age: 66 Year
  Sex: Male
  Weight: 136.4 kg

DRUGS (7)
  1. ZOLOFT [Concomitant]
  2. AVANDIA [Suspect]
     Indication: DIABETES MELLITUS
     Dosage: 4MG PER DAY
     Route: 048
     Dates: start: 20010101, end: 20090101
  3. GLUCOPHAGE [Concomitant]
  4. ZESTRIL [Concomitant]
  5. ZOCOR [Concomitant]
  6. LOPRESSOR [Concomitant]
  7. LOPID [Concomitant]

REACTIONS (8)
  - PERIPHERAL VASCULAR DISORDER [None]
  - CARDIAC FAILURE CONGESTIVE [None]
  - RENAL FAILURE CHRONIC [None]
  - MYOCARDIAL INFARCTION [None]
  - MITRAL VALVE INCOMPETENCE [None]
  - LACUNAR INFARCTION [None]
  - AORTIC VALVE STENOSIS [None]
  - RESPIRATORY FAILURE [None]
